FAERS Safety Report 6765569-0 (Version None)
Quarter: 2010Q2

REPORT INFORMATION
  Report Type: 
  Country: None (occurrence: None)
  Receive Date: 20100611
  Receipt Date: 20100608
  Transmission Date: 20101027
  Serious: Yes (Death, Other)
  Sender: FDA-Public Use
  Company Number: PHHY2010IT36762

PATIENT
  Age: 54 Year
  Sex: Male

DRUGS (8)
  1. CYCLOSPORINE [Suspect]
     Indication: HEART TRANSPLANT
  2. CYCLOSPORINE [Suspect]
     Indication: RENAL TRANSPLANT
  3. AZATHIOPRINE [Suspect]
     Indication: HEART TRANSPLANT
  4. AZATHIOPRINE [Suspect]
     Indication: RENAL TRANSPLANT
  5. STEROIDS NOS [Suspect]
     Indication: HEART TRANSPLANT
  6. STEROIDS NOS [Suspect]
     Indication: RENAL TRANSPLANT
  7. ATG-FRESENIUS [Concomitant]
     Indication: HEART TRANSPLANT
  8. ATG-FRESENIUS [Concomitant]
     Indication: RENAL TRANSPLANT

REACTIONS (5)
  - BLOOD CREATINE INCREASED [None]
  - GLOMERULAR FILTRATION RATE DECREASED [None]
  - HEART TRANSPLANT REJECTION [None]
  - INFECTION [None]
  - MULTI-ORGAN FAILURE [None]
